FAERS Safety Report 23353579 (Version 2)
Quarter: 2024Q1

REPORT INFORMATION
  Report Type: Report from Study
  Country: FR (occurrence: FR)
  Receive Date: 20231231
  Receipt Date: 20240103
  Transmission Date: 20240409
  Serious: Yes (Other)
  Sender: FDA-Public Use
  Company Number: FR-ABBVIE-5563581

PATIENT
  Sex: Female
  Weight: 59 kg

DRUGS (24)
  1. UPADACITINIB [Suspect]
     Active Substance: UPADACITINIB
     Indication: Rheumatoid arthritis
     Dosage: 15 MILLIGRAM
     Route: 048
     Dates: start: 20230410, end: 20231125
  2. UPADACITINIB [Suspect]
     Active Substance: UPADACITINIB
     Indication: Rheumatoid arthritis
     Dosage: 15 MILLIGRAM
     Route: 048
     Dates: start: 20211101, end: 20230406
  3. UPADACITINIB [Suspect]
     Active Substance: UPADACITINIB
     Indication: Rheumatoid arthritis
     Dosage: 15 MILLIGRAM
     Route: 048
     Dates: start: 20231213
  4. PREDNISONE [Concomitant]
     Active Substance: PREDNISONE
     Indication: Rheumatoid arthritis
     Dosage: 2 MILLIGRAM
     Dates: start: 202208, end: 202211
  5. PREDNISONE [Concomitant]
     Active Substance: PREDNISONE
     Indication: Rheumatoid arthritis
     Dosage: 3 MILLIGRAM
     Dates: start: 202211, end: 20230105
  6. PREDNISONE [Concomitant]
     Active Substance: PREDNISONE
     Indication: Rheumatoid arthritis
     Dosage: 3 MILLIGRAM
     Dates: start: 1990, end: 202208
  7. PREDNISONE [Concomitant]
     Active Substance: PREDNISONE
     Indication: Rheumatoid arthritis
     Dosage: 4 MILLIGRAM
     Dates: start: 20230106, end: 20230205
  8. EZETIMIBE [Concomitant]
     Active Substance: EZETIMIBE
     Indication: Hypercholesterolaemia
     Dosage: 10 MILLIGRAM
     Dates: start: 201404
  9. Severe acute respiratory syndrome coronavirus 2 (SARS-CoV-2) vaccine [Concomitant]
     Indication: COVID-19 prophylaxis
     Dates: start: 202108, end: 202108
  10. Severe acute respiratory syndrome coronavirus 2 (SARS-CoV-2) vaccine [Concomitant]
     Indication: COVID-19 prophylaxis
     Dates: start: 20211210, end: 20211210
  11. IRBESARTAN [Concomitant]
     Active Substance: IRBESARTAN
     Indication: Sinus tachycardia
     Dosage: 150 MILLIGRAM
     Dates: start: 20230615, end: 202309
  12. CHOLECALCIFEROL [Concomitant]
     Active Substance: CHOLECALCIFEROL
     Indication: Osteoporosis
     Dates: start: 2016
  13. KARDEGIC [Concomitant]
     Active Substance: ASPIRIN DL-LYSINE
     Indication: Ischaemic stroke
     Dosage: 160 MILLIGRAM
     Dates: start: 201404
  14. ACLASTA [Concomitant]
     Active Substance: ZOLEDRONIC ACID
     Indication: Osteoporosis
     Dates: start: 2016
  15. CANDESARTAN [Concomitant]
     Active Substance: CANDESARTAN
     Indication: Sinus tachycardia
     Dosage: 16 MILLIGRAM
     Dates: start: 202309
  16. LEFLUNOMIDE [Concomitant]
     Active Substance: LEFLUNOMIDE
     Indication: Rheumatoid arthritis
     Dosage: 10 MILLIGRAM
     Dates: start: 201707, end: 20220127
  17. CORTISONE [Concomitant]
     Active Substance: CORTISONE
     Indication: Rheumatoid arthritis
     Dosage: 15 MILLIGRAM
     Dates: start: 20230316, end: 20230321
  18. CORTISONE [Concomitant]
     Active Substance: CORTISONE
     Indication: Rheumatoid arthritis
     Dosage: 4 MILLIGRAM
     Dates: start: 20230402
  19. CORTISONE [Concomitant]
     Active Substance: CORTISONE
     Indication: Rheumatoid arthritis
     Dosage: 10 MILLIGRAM
     Dates: start: 20230313, end: 20230315
  20. CORTISONE [Concomitant]
     Active Substance: CORTISONE
     Indication: Rheumatoid arthritis
     Dosage: 10 MILLIGRAM
     Dates: start: 20230322, end: 20230327
  21. CORTISONE [Concomitant]
     Active Substance: CORTISONE
     Indication: Rheumatoid arthritis
     Dosage: 5 MILLIGRAM
     Dates: start: 20230328, end: 20230401
  22. OROCAL [Concomitant]
     Indication: Osteoporosis
     Dosage: 500 MILLIGRAM
     Dates: start: 2009
  23. ESOMEPRAZOLE [Concomitant]
     Active Substance: ESOMEPRAZOLE
     Indication: Prophylaxis
     Dosage: 20 MILLIGRAM
     Dates: start: 20230713
  24. ESOMEPRAZOLE [Concomitant]
     Active Substance: ESOMEPRAZOLE
     Indication: Prophylaxis
     Dosage: 20 MILLIGRAM
     Dates: start: 20220915

REACTIONS (3)
  - Foot deformity [Recovered/Resolved]
  - Procedural pain [Recovered/Resolved]
  - Pain [Recovered/Resolved]

NARRATIVE: CASE EVENT DATE: 20230713
